FAERS Safety Report 4663993-3 (Version None)
Quarter: 2005Q2

REPORT INFORMATION
  Report Type: 
  Country: None (occurrence: None)
  Receive Date: 20050516
  Receipt Date: 20050516
  Transmission Date: 20051028
  Serious: Yes (Life-Threatening, Hospitalization)
  Sender: FDA-Public Use
  Company Number: None

PATIENT
  Age: 31 Year
  Sex: Male
  Weight: 64 kg

DRUGS (1)
  1. INSULIN ASPART 100 UNITS/ML [Suspect]
     Indication: DIABETES MELLITUS
     Dosage: 1000 UNITS ONCE SUBCUTANEOUS
     Route: 058
     Dates: start: 20050120, end: 20050120

REACTIONS (3)
  - INTENTIONAL MISUSE [None]
  - MEDICATION ERROR [None]
  - SUICIDE ATTEMPT [None]
